FAERS Safety Report 23409938 (Version 1)
Quarter: 2024Q1

REPORT INFORMATION
  Report Type: Spontaneous
  Country: KZ (occurrence: KZ)
  Receive Date: 20240117
  Receipt Date: 20240117
  Transmission Date: 20240410
  Serious: Yes (Other)
  Sender: FDA-Public Use
  Company Number: KZ-BAYER-2024A002874

PATIENT
  Age: 63 Year
  Sex: Male

DRUGS (2)
  1. NEXAVAR [Suspect]
     Active Substance: SORAFENIB
     Indication: Hepatocellular carcinoma
     Dosage: UNK
     Dates: start: 2021
  2. STIVARGA [Suspect]
     Active Substance: REGORAFENIB
     Indication: Hepatocellular carcinoma
     Dosage: UNK
     Dates: start: 202109

REACTIONS (1)
  - Angiotensin converting enzyme increased [Unknown]
